FAERS Safety Report 23791514 (Version 1)
Quarter: 2024Q2

REPORT INFORMATION
  Report Type: Spontaneous
  Country: US (occurrence: US)
  Receive Date: 20240429
  Receipt Date: 20240429
  Transmission Date: 20240716
  Serious: Yes (Other)
  Sender: FDA-Public Use
  Company Number: US-NOVOPROD-1208271

PATIENT
  Age: 77 Year
  Sex: Male

DRUGS (1)
  1. OZEMPIC [Suspect]
     Active Substance: SEMAGLUTIDE
     Indication: Type 2 diabetes mellitus
     Dosage: 0.25 MG
     Route: 058
     Dates: start: 202304

REACTIONS (5)
  - Systemic lupus erythematosus [Not Recovered/Not Resolved]
  - Blood glucose decreased [Recovered/Resolved]
  - Dizziness [Recovered/Resolved]
  - Abdominal distension [Unknown]
  - Off label use [Unknown]

NARRATIVE: CASE EVENT DATE: 20240401
